FAERS Safety Report 25322683 (Version 1)
Quarter: 2025Q2

REPORT INFORMATION
  Report Type: Spontaneous
  Country: FR (occurrence: FR)
  Receive Date: 20250516
  Receipt Date: 20250516
  Transmission Date: 20250717
  Serious: Yes (Other)
  Sender: Kenvue
  Company Number: None

PATIENT

DRUGS (1)
  1. IMODIUM [Suspect]
     Active Substance: LOPERAMIDE HYDROCHLORIDE
     Indication: Gastroenteritis viral
     Route: 048
     Dates: start: 20240301, end: 20240301

REACTIONS (4)
  - Somnolence [Recovered/Resolved]
  - Product administered to patient of inappropriate age [Recovered/Resolved]
  - Wrong product administered [Recovered/Resolved]
  - Accidental overdose [Recovered/Resolved]

NARRATIVE: CASE EVENT DATE: 20240301
